FAERS Safety Report 15978982 (Version 1)
Quarter: 2019Q1

REPORT INFORMATION
  Report Type: Spontaneous
  Country: BE (occurrence: BE)
  Receive Date: 20190219
  Receipt Date: 20190219
  Transmission Date: 20190418
  Serious: Yes (Other)
  Sender: FDA-Public Use
  Company Number: BE-BAUSCH-BL-2019-004648

PATIENT
  Sex: Male
  Weight: 52 kg

DRUGS (6)
  1. METFORMIN [Suspect]
     Active Substance: METFORMIN HYDROCHLORIDE
     Route: 065
  2. METFORMIN [Suspect]
     Active Substance: METFORMIN HYDROCHLORIDE
     Indication: TYPE 2 DIABETES MELLITUS
     Route: 065
  3. SODIUM VALPROATE [Concomitant]
     Active Substance: VALPROATE SODIUM
     Indication: LAFORA^S MYOCLONIC EPILEPSY
     Route: 065
  4. PERAMPANEL [Concomitant]
     Active Substance: PERAMPANEL
     Indication: LAFORA^S MYOCLONIC EPILEPSY
     Route: 065
  5. CLONAZEPAM. [Concomitant]
     Active Substance: CLONAZEPAM
     Indication: LAFORA^S MYOCLONIC EPILEPSY
     Route: 065
  6. METFORMIN [Suspect]
     Active Substance: METFORMIN HYDROCHLORIDE
     Route: 065

REACTIONS (1)
  - Gastrointestinal disorder [Unknown]
